FAERS Safety Report 18886641 (Version 2)
Quarter: 2021Q1

REPORT INFORMATION
  Report Type: Report from Study
  Country: CN (occurrence: CN)
  Receive Date: 20210212
  Receipt Date: 20210225
  Transmission Date: 20210420
  Serious: Yes (Death, Other)
  Sender: FDA-Public Use
  Company Number: CN-GLAXOSMITHKLINE-CN2021APC033205

PATIENT
  Sex: Male

DRUGS (2)
  1. ISOPHANE PROTAMINE BIOSYNTHETIC HUMAN INSULIN [Concomitant]
     Active Substance: INSULIN HUMAN
     Indication: DIABETES MELLITUS
     Dosage: UNK
  2. FLUTICASONE PROPIONATE+SALMETEROL XINAFOATE [Suspect]
     Active Substance: FLUTICASONE PROPIONATE\SALMETEROL XINAFOATE
     Indication: CHRONIC OBSTRUCTIVE PULMONARY DISEASE
     Dosage: 2 PUFF(S), QD (50UG/250UG 60 INHALATIONS/BOX)
     Route: 055

REACTIONS (2)
  - Respiratory arrest [Unknown]
  - Death [Fatal]

NARRATIVE: CASE EVENT DATE: 20210113
